FAERS Safety Report 4756720-2 (Version None)
Quarter: 2005Q3

REPORT INFORMATION
  Report Type: 
  Country: None (occurrence: None)
  Receive Date: 20050830
  Receipt Date: 20050718
  Transmission Date: 20060218
  Serious: Yes (Death, Hospitalization)
  Sender: FDA-Public Use
  Company Number: US-MERCK-0507USA03033

PATIENT
  Age: 86 Year
  Sex: Female
  Weight: 42 kg

DRUGS (4)
  1. VIOXX [Suspect]
     Indication: ARTHRITIS
     Route: 048
     Dates: start: 20000101, end: 20030824
  2. COUMADIN [Concomitant]
     Route: 065
  3. NORTRIPTYLINE [Concomitant]
     Route: 065
  4. ISOSORBIDE [Concomitant]
     Route: 065

REACTIONS (6)
  - BLOOD GLUCOSE INCREASED [None]
  - CATARACT [None]
  - CEREBROVASCULAR ACCIDENT [None]
  - CONSTIPATION [None]
  - HYPERTENSION [None]
  - OEDEMA PERIPHERAL [None]
